FAERS Safety Report 9539142 (Version 1)
Quarter: 2013Q3

REPORT INFORMATION
  Report Type: Spontaneous
  Country: CA (occurrence: CA)
  Receive Date: 20130920
  Receipt Date: 20130920
  Transmission Date: 20140515
  Serious: Yes (Hospitalization, Other)
  Sender: FDA-Public Use
  Company Number: CA-ROCHE-1275880

PATIENT
  Age: 49 Year
  Sex: Male
  Weight: 69 kg

DRUGS (10)
  1. AVASTIN [Suspect]
     Indication: PRODUCT USED FOR UNKNOWN INDICATION
     Route: 042
  2. DEXAMETHASONE [Concomitant]
     Route: 065
  3. DOCUSATE SODIUM [Concomitant]
     Route: 065
  4. ELOXATIN [Concomitant]
  5. FLUOROURACIL [Concomitant]
     Route: 065
  6. LEUCOVORIN [Concomitant]
     Route: 065
  7. LORAZEPAM [Concomitant]
     Route: 065
  8. METOCLOPRAMIDE [Concomitant]
     Route: 065
  9. PANTOLOC [Concomitant]
     Route: 065
  10. SENNOSIDES [Concomitant]
     Route: 065

REACTIONS (5)
  - Agitation [Recovered/Resolved]
  - Amnesia [Recovered/Resolved]
  - Convulsion [Recovered/Resolved]
  - Hypersomnia [Recovered/Resolved]
  - Mental impairment [Recovered/Resolved]
